FAERS Safety Report 12859069 (Version 1)
Quarter: 2016Q4

REPORT INFORMATION
  Report Type: Spontaneous
  Country: AU (occurrence: AU)
  Receive Date: 20161018
  Receipt Date: 20161018
  Transmission Date: 20170207
  Serious: Yes (Hospitalization)
  Sender: FDA-Public Use
  Company Number: AU-INGENUS PHARMACEUTICALS NJ, LLC-ING201610-000068

PATIENT
  Age: 75 Year
  Sex: Male
  Weight: 45 kg

DRUGS (2)
  1. CARISOPRODOL AND ASPIRIN [Suspect]
     Active Substance: ASPIRIN\CARISOPRODOL
  2. CARISOPRODOL AND ASPIRIN [Suspect]
     Active Substance: ASPIRIN\CARISOPRODOL

REACTIONS (7)
  - Intentional overdose [Unknown]
  - Hyperventilation [Unknown]
  - Toxicity to various agents [Unknown]
  - Dehydration [Unknown]
  - Tinnitus [Unknown]
  - Nausea [Unknown]
  - Respiratory alkalosis [Unknown]
